FAERS Safety Report 4627379-X (Version None)
Quarter: 2005Q1

REPORT INFORMATION
  Report Type: 
  Country: None (occurrence: None)
  Receive Date: 20050330
  Receipt Date: 20050323
  Transmission Date: 20050727
  Serious: Yes (Death, Hospitalization)
  Sender: FDA-Public Use
  Company Number: HQWYE156016MAR05

PATIENT
  Age: 83 Year
  Sex: Male

DRUGS (1)
  1. PANTOPRAZOLE SODIUM [Suspect]
     Indication: GASTROOESOPHAGEAL REFLUX DISEASE
     Dosage: 20 MG  1X PER 1 DAY, ORAL
     Route: 048
     Dates: start: 20041007, end: 20040101

REACTIONS (2)
  - CEREBROVASCULAR ACCIDENT [None]
  - PARANEOPLASTIC SYNDROME [None]
